FAERS Safety Report 24886013 (Version 1)
Quarter: 2025Q1

REPORT INFORMATION
  Report Type: Spontaneous
  Country: US (occurrence: US)
  Receive Date: 20250125
  Receipt Date: 20250125
  Transmission Date: 20250409
  Serious: No
  Sender: MERCK
  Company Number: US-009507513-2501USA005503

PATIENT
  Sex: Female
  Weight: 79.4 kg

DRUGS (2)
  1. WINREVAIR [Suspect]
     Active Substance: SOTATERCEPT-CSRK
     Route: 058
  2. TYVASO DPI [Suspect]
     Active Substance: TREPROSTINIL
     Indication: Pulmonary arterial hypertension
     Dosage: 64 MICROGRAM, QID
     Dates: start: 20240826

REACTIONS (1)
  - Weight increased [Unknown]
